FAERS Safety Report 9110301 (Version 2)
Quarter: 2013Q1

REPORT INFORMATION
  Report Type: Spontaneous
  Country: FI (occurrence: FI)
  Receive Date: 20130222
  Receipt Date: 20130308
  Transmission Date: 20140127
  Serious: Yes (Hospitalization)
  Sender: FDA-Public Use
  Company Number: FI-AMGEN-FINSP2013011427

PATIENT
  Sex: Male

DRUGS (8)
  1. NEULASTA [Suspect]
     Indication: SEMINOMA
     Dosage: 6 MG, UNK
     Dates: start: 20121222
  2. PLATINOL [Concomitant]
     Indication: SEMINOMA
     Dosage: UNK
     Dates: start: 20121217
  3. ETOPOSIDE [Concomitant]
     Indication: SEMINOMA
     Dosage: UNK
     Dates: start: 20121217
  4. BLEOMYCIN [Concomitant]
     Indication: SEMINOMA
     Dosage: UNK
     Dates: start: 20121217
  5. LITALGIN                           /00320201/ [Concomitant]
     Indication: PAIN
     Dosage: UNK
  6. PANADOL                            /00020001/ [Concomitant]
     Indication: PAIN
     Dosage: UNK
  7. PERFALGAN [Concomitant]
     Indication: PAIN
     Dosage: UNK
  8. MORPHINE [Concomitant]
     Indication: PAIN
     Dosage: UNK

REACTIONS (4)
  - Pyrexia [Recovering/Resolving]
  - Neutropenia [Recovered/Resolved]
  - Malaise [Unknown]
  - General physical health deterioration [Unknown]
